FAERS Safety Report 15753351 (Version 1)
Quarter: 2018Q4

REPORT INFORMATION
  Report Type: Spontaneous
  Country: SE (occurrence: SE)
  Receive Date: 20181222
  Receipt Date: 20181222
  Transmission Date: 20190205
  Serious: Yes (Life-Threatening, Hospitalization, Other)
  Sender: FDA-Public Use
  Company Number: SE-TEVA-2018-SE-989525

PATIENT
  Age: 90 Year
  Sex: Female

DRUGS (12)
  1. BETOLVEX 1 MG FILMDRAGERAD TABLETT [Concomitant]
     Route: 065
  2. XERODENT 28,6 MG/0,25 MG SUGTABLETT [Concomitant]
     Route: 065
  3. PANODIL 500 MG FILMDRAGERAD TABLETT [Concomitant]
     Active Substance: ACETAMINOPHEN
     Indication: PAIN
     Route: 065
  4. LANZO 15 MG MUNS?NDERFALLANDE TABLETT [Concomitant]
     Route: 065
  5. SAROTEN 25 MG FILMDRAGERAD TABLETT [Concomitant]
     Route: 065
  6. CLOPIDOGREL [Suspect]
     Active Substance: CLOPIDOGREL BISULFATE
     Indication: MYOCARDIAL INFARCTION
     Route: 048
     Dates: start: 20140806, end: 20140811
  7. TROMBYL 75 MG TABLETT [Suspect]
     Active Substance: ASPIRIN
     Dosage: 75 MILLIGRAM DAILY;
     Route: 048
     Dates: start: 20140806, end: 20140806
  8. TROMBYL 75 MG TABLETT [Suspect]
     Active Substance: ASPIRIN
     Indication: MYOCARDIAL INFARCTION
     Dosage: 75 MILLIGRAM DAILY;
     Route: 048
     Dates: start: 20140807, end: 20140811
  9. ARIXTRA [Suspect]
     Active Substance: FONDAPARINUX SODIUM
     Indication: MYOCARDIAL INFARCTION
     Dosage: 2.5 MILLIGRAM DAILY; 2.5 MG/0.5ML
     Route: 065
     Dates: start: 20140806, end: 20140808
  10. LEVAXIN 50 MIKROGRAM TABLETT [Concomitant]
     Route: 065
  11. PREDNISOLONE. [Concomitant]
     Active Substance: PREDNISOLONE
     Route: 065
  12. SELOKEN 50 MG TABLETT [Concomitant]
     Route: 065

REACTIONS (2)
  - Oesophageal candidiasis [Unknown]
  - Cerebral haemorrhage [Not Recovered/Not Resolved]

NARRATIVE: CASE EVENT DATE: 20140811
